FAERS Safety Report 7833977-2 (Version None)
Quarter: 2011Q4

REPORT INFORMATION
  Report Type: 
  Country: None (occurrence: None)
  Receive Date: 20111024
  Receipt Date: 20111013
  Transmission Date: 20120403
  Serious: No
  Sender: FDA-Public Use
  Company Number: US-JNJFOC-20111007202

PATIENT
  Sex: Male
  Weight: 79.83 kg

DRUGS (6)
  1. DURAGESIC-100 [Suspect]
     Indication: PAIN
     Dosage: 100 UG/HR + 25 UG/HR = 125 UG/HR PATCHES
     Route: 062
     Dates: start: 20110401
  2. DURAGESIC-100 [Suspect]
     Dosage: 100 UG/HR + 25 UG/HR = 125 UG/HR PATCHES
     Route: 062
     Dates: start: 20090101, end: 20110401
  3. CHOLESTEROL PILL [Concomitant]
     Indication: BLOOD CHOLESTEROL INCREASED
     Route: 048
  4. ZESTRIL [Concomitant]
     Indication: BLOOD PRESSURE
     Route: 048
  5. PRILOSEC [Concomitant]
     Indication: GASTROOESOPHAGEAL REFLUX DISEASE
     Route: 048
  6. IMDUR [Concomitant]
     Indication: BLOOD PRESSURE
     Route: 048

REACTIONS (6)
  - PRODUCT ADHESION ISSUE [None]
  - DRUG EFFECT DECREASED [None]
  - INADEQUATE ANALGESIA [None]
  - PRODUCT QUALITY ISSUE [None]
  - WRONG TECHNIQUE IN DRUG USAGE PROCESS [None]
  - MEMORY IMPAIRMENT [None]
